FAERS Safety Report 18986173 (Version 1)
Quarter: 2021Q1

REPORT INFORMATION
  Report Type: Spontaneous
  Country: US (occurrence: US)
  Receive Date: 20210308
  Receipt Date: 20210308
  Transmission Date: 20210420
  Serious: Yes (Death)
  Sender: FDA-Public Use
  Company Number: None

PATIENT
  Age: 43 Year
  Sex: Male
  Weight: 98.2 kg

DRUGS (22)
  1. ETHANOLAMINE [Concomitant]
     Active Substance: MONOETHANOLAMINE
     Dates: start: 20210305
  2. METOCLOPRAMIDE. [Concomitant]
     Active Substance: METOCLOPRAMIDE
     Dates: start: 20210305
  3. ACETAMINOPHEN. [Concomitant]
     Active Substance: ACETAMINOPHEN
     Dates: start: 20210303
  4. ALBUMIN [Concomitant]
     Active Substance: ALBUMIN HUMAN
     Dates: start: 20210305
  5. AZITHROMYCIN ANHYDROUS. [Concomitant]
     Active Substance: AZITHROMYCIN ANHYDROUS
     Dates: start: 20210303
  6. ETOMIDATE. [Concomitant]
     Active Substance: ETOMIDATE
     Dates: start: 20210303
  7. REMDESIVIR. [Suspect]
     Active Substance: REMDESIVIR
     Indication: COVID-19
     Route: 042
     Dates: start: 20210304, end: 20210304
  8. ASCORBIC ACID. [Concomitant]
     Active Substance: ASCORBIC ACID
     Dates: start: 20210303
  9. ENOXAPARIN [Concomitant]
     Active Substance: ENOXAPARIN
     Dates: start: 20210303
  10. CALCIUM GLUCONATE. [Concomitant]
     Active Substance: CALCIUM GLUCONATE
     Dates: start: 20210305
  11. CHOLECALCIFEROL [Concomitant]
     Active Substance: CHOLECALCIFEROL
     Dates: start: 20210303
  12. DEXAMETHASONE. [Concomitant]
     Active Substance: DEXAMETHASONE
     Dates: start: 20210303
  13. MIDAZOLAM. [Concomitant]
     Active Substance: MIDAZOLAM
     Dates: start: 20210303
  14. FAMOTIDINE. [Concomitant]
     Active Substance: FAMOTIDINE
     Dates: start: 20210303
  15. KETAMINE [Concomitant]
     Active Substance: KETAMINE
     Dates: start: 20210303
  16. FENTANYL. [Concomitant]
     Active Substance: FENTANYL
     Dates: start: 20210303
  17. HALOPERIDOL. [Concomitant]
     Active Substance: HALOPERIDOL
     Dates: start: 20210303
  18. LACTULOSE. [Concomitant]
     Active Substance: LACTULOSE
     Dates: start: 20210303
  19. CEFTRIAXONE. [Concomitant]
     Active Substance: CEFTRIAXONE
     Dates: start: 20210303
  20. FOLIC ACID. [Concomitant]
     Active Substance: FOLIC ACID
  21. INSULIN [Concomitant]
     Active Substance: INSULIN NOS
     Dates: start: 20210303
  22. LORAZEPAM. [Concomitant]
     Active Substance: LORAZEPAM
     Dates: start: 20210303

REACTIONS (7)
  - Respiratory failure [None]
  - Ischaemic hepatitis [None]
  - Hypotension [None]
  - Coagulopathy [None]
  - Acute kidney injury [None]
  - Cardiac arrest [None]
  - Transfusion [None]

NARRATIVE: CASE EVENT DATE: 20210305
